FAERS Safety Report 11799748 (Version 1)
Quarter: 2015Q4

REPORT INFORMATION
  Report Type: Spontaneous
  Country: CA (occurrence: CA)
  Receive Date: 20151203
  Receipt Date: 20151203
  Transmission Date: 20160305
  Serious: Yes (Other)
  Sender: FDA-Public Use
  Company Number: CA-TEVA-613476ACC

PATIENT
  Age: 23 Year
  Sex: Male
  Weight: 90 kg

DRUGS (1)
  1. NOVO-FINASTERIDE [Suspect]
     Active Substance: FINASTERIDE
     Indication: ANDROGENETIC ALOPECIA
     Dosage: 1.25 MILLIGRAM DAILY;
     Route: 048

REACTIONS (7)
  - Feeling abnormal [Not Recovered/Not Resolved]
  - Dry eye [Not Recovered/Not Resolved]
  - Erectile dysfunction [Not Recovered/Not Resolved]
  - Constipation [Not Recovered/Not Resolved]
  - Breast tenderness [Not Recovered/Not Resolved]
  - Muscle twitching [Not Recovered/Not Resolved]
  - Testicular pain [Not Recovered/Not Resolved]
